FAERS Safety Report 14149125 (Version 1)
Quarter: 2017Q4

REPORT INFORMATION
  Report Type: Spontaneous
  Country: ZA (occurrence: ZA)
  Receive Date: 20171101
  Receipt Date: 20171101
  Transmission Date: 20180321
  Serious: Yes (Hospitalization, Other)
  Sender: FDA-Public Use
  Company Number: ZA-PFIZER INC-2017465678

PATIENT
  Sex: Male
  Weight: 80 kg

DRUGS (4)
  1. CHLOROQUINE. [Suspect]
     Active Substance: CHLOROQUINE
     Dosage: 200 UG, DAILY
     Dates: start: 2008
  2. METHOTREXATE SODIUM. [Suspect]
     Active Substance: METHOTREXATE SODIUM
     Dosage: 25 UG, WEEKLY
     Dates: start: 2005
  3. PREDNISONE. [Suspect]
     Active Substance: PREDNISONE
     Dosage: 20 UG, DAILY
     Dates: start: 2005
  4. ARAVA [Suspect]
     Active Substance: LEFLUNOMIDE
     Dosage: 20 UG, DAILY
     Route: 048
     Dates: start: 2011

REACTIONS (5)
  - Peptic ulcer [Unknown]
  - Drug ineffective [Unknown]
  - Weight bearing difficulty [Unknown]
  - Rheumatoid arthritis [Unknown]
  - Depression [Unknown]

NARRATIVE: CASE EVENT DATE: 2005
